FAERS Safety Report 5750295-7 (Version None)
Quarter: 2008Q2

REPORT INFORMATION
  Report Type: 
  Country: None (occurrence: None)
  Receive Date: 20080522
  Receipt Date: 20080522
  Transmission Date: 20081010
  Serious: Yes (Hospitalization, Disabling)
  Sender: FDA-Public Use
  Company Number: None

PATIENT
  Sex: Female

DRUGS (1)
  1. ZYMAR [Suspect]
     Indication: CHEMICAL BURNS OF EYE
     Dosage: ONE DROP INTO EACH EYE FOUR TIMES DAILY INTRAOCULAR (DURATION: ONE DOSE ONLY)
     Route: 031
     Dates: start: 20080518, end: 20080518

REACTIONS (1)
  - EYE IRRITATION [None]
